FAERS Safety Report 21573627 (Version 1)
Quarter: 2022Q4

REPORT INFORMATION
  Report Type: Spontaneous
  Country: US (occurrence: US)
  Receive Date: 20221109
  Receipt Date: 20221109
  Transmission Date: 20230112
  Serious: No
  Sender: FDA-Public Use
  Company Number: US-GALDERMA-US2022012799

PATIENT

DRUGS (1)
  1. EPSOLAY [Suspect]
     Active Substance: BENZOYL PEROXIDE
     Dosage: 1 DOSAGE FORM
     Route: 065

REACTIONS (1)
  - Drug ineffective [Unknown]
